FAERS Safety Report 5254117-2 (Version None)
Quarter: 2007Q1

REPORT INFORMATION
  Report Type: 
  Country: None (occurrence: None)
  Receive Date: 20070302
  Receipt Date: 20070216
  Transmission Date: 20070707
  Serious: Yes (Other)
  Sender: FDA-Public Use
  Company Number: PHBS2007CH03057

PATIENT
  Sex: Female

DRUGS (4)
  1. GLEEVEC [Suspect]
     Indication: CHRONIC MYELOID LEUKAEMIA
     Dosage: 600 MG/DAY
     Dates: start: 20020528
  2. GLEEVEC [Suspect]
     Dosage: 800 MG/DAY
  3. FOLVITE [Concomitant]
     Indication: ANAEMIA
  4. VITAMIN B-12 [Concomitant]

REACTIONS (1)
  - HEARING IMPAIRED [None]
